FAERS Safety Report 4615071-7 (Version None)
Quarter: 2005Q1

REPORT INFORMATION
  Report Type: 
  Country: None (occurrence: None)
  Receive Date: 20050315
  Receipt Date: 20050301
  Transmission Date: 20050727
  Serious: Yes (Life-Threatening, Hospitalization)
  Sender: FDA-Public Use
  Company Number: 213028

PATIENT
  Age: 62 Year
  Sex: Male
  Weight: 65.4 kg

DRUGS (6)
  1. AVASTIN [Suspect]
     Indication: COLORECTAL CANCER METASTATIC
     Dosage: 465, INTRAVENOUS
     Route: 042
     Dates: start: 20041207
  2. TRAMADOL HCL [Concomitant]
  3. ACETAMINOPHEN [Concomitant]
  4. FUROSEMIDE [Concomitant]
  5. LACTULOSE [Concomitant]
  6. ZOPICLONE (ZOPICLONE) [Concomitant]

REACTIONS (4)
  - ACUTE CORONARY SYNDROME [None]
  - MELAENA [None]
  - PNEUMONIA [None]
  - RENAL IMPAIRMENT [None]
